FAERS Safety Report 9601809 (Version 2)
Quarter: 2013Q4

REPORT INFORMATION
  Report Type: Spontaneous
  Country: PL (occurrence: PL)
  Receive Date: 20131007
  Receipt Date: 20131007
  Transmission Date: 20140711
  Serious: Yes (Other)
  Sender: FDA-Public Use
  Company Number: PL-AMGEN-POLSP2013066133

PATIENT
  Age: 70 Year
  Sex: Female
  Weight: 80 kg

DRUGS (4)
  1. XGEVA [Suspect]
     Indication: METASTASES TO BONE
     Dosage: 120 MG, QMO
     Route: 058
     Dates: start: 201306, end: 201309
  2. BLOOD CELLS, PACKED HUMAN [Concomitant]
     Dosage: 2
     Route: 042
     Dates: start: 20130806
  3. CLEXANE [Concomitant]
  4. POLPRAZOL                          /00661201/ [Concomitant]

REACTIONS (4)
  - Pyrexia [Recovered/Resolved]
  - C-reactive protein increased [Unknown]
  - Metastasis [Unknown]
  - Fatigue [Unknown]
